FAERS Safety Report 8392982-0 (Version None)
Quarter: 2012Q2

REPORT INFORMATION
  Report Type: 
  Country: None (occurrence: None)
  Receive Date: 20120529
  Receipt Date: 20120523
  Transmission Date: 20120825
  Serious: Yes (Death, Life-Threatening, Hospitalization, Disabling)
  Sender: FDA-Public Use
  Company Number: US-PFIZER INC-2008158284

PATIENT
  Sex: Female
  Weight: 84.807 kg

DRUGS (7)
  1. AMLODIPINE AND ATORVASTATIN [Suspect]
     Indication: HYPERTENSION
     Dosage: UNK
  2. FELODIPINE [Concomitant]
  3. ATACAND [Suspect]
     Dosage: UNK
     Dates: end: 20080228
  4. CITALOPRAM [Concomitant]
  5. ATENOLOL [Concomitant]
  6. PALMAZ GENESIS [Suspect]
     Dosage: UNK
     Dates: start: 20080111
  7. TERAZOSIN [Concomitant]

REACTIONS (1)
  - CEREBROVASCULAR ACCIDENT [None]
